FAERS Safety Report 19123728 (Version 1)
Quarter: 2021Q2

REPORT INFORMATION
  Report Type: Spontaneous
  Country: None (occurrence: US)
  Receive Date: 20210412
  Receipt Date: 20210412
  Transmission Date: 20210717
  Serious: No
  Sender: FDA-Public Use
  Company Number: US-KINDEVA DRUG DELIVERY L.P.-2109207

PATIENT
  Sex: Male

DRUGS (15)
  1. LENVIMA [Suspect]
     Active Substance: LENVATINIB
     Route: 065
     Dates: start: 20210216
  2. LISINOPRIL AND HYDROCHLOROTHIAZIDE [Suspect]
     Active Substance: HYDROCHLOROTHIAZIDE\LISINOPRIL
     Route: 065
  3. ESZOPICLONE. [Suspect]
     Active Substance: ESZOPICLONE
     Route: 065
  4. COLACE [Suspect]
     Active Substance: DOCUSATE SODIUM
     Route: 065
  5. LEVOTHYROXINE. [Suspect]
     Active Substance: LEVOTHYROXINE
     Route: 065
  6. LOPERAMIDE [Suspect]
     Active Substance: LOPERAMIDE
     Route: 065
  7. PFIZER?BIONTECH COVID?19 VACCINE [Suspect]
     Active Substance: TOZINAMERAN
     Route: 058
  8. OMEPRAZOLE. [Suspect]
     Active Substance: OMEPRAZOLE
     Route: 065
  9. POTASSIUM [Suspect]
     Active Substance: POTASSIUM
     Route: 065
  10. ALBUTEROL SULFATE. [Suspect]
     Active Substance: ALBUTEROL SULFATE
  11. PROVENTIL [Suspect]
     Active Substance: ALBUTEROL
  12. LORATADINE. [Suspect]
     Active Substance: LORATADINE
     Route: 065
  13. ONDANSETRON [Suspect]
     Active Substance: ONDANSETRON
     Route: 065
  14. ATORVASTATIN [Suspect]
     Active Substance: ATORVASTATIN
     Route: 065
  15. XARELTO [Suspect]
     Active Substance: RIVAROXABAN
     Route: 065

REACTIONS (3)
  - Mouth ulceration [Not Recovered/Not Resolved]
  - Fatigue [Not Recovered/Not Resolved]
  - Adverse event [Not Recovered/Not Resolved]
